FAERS Safety Report 8862160 (Version 1)
Quarter: 2012Q4

REPORT INFORMATION
  Report Type: 
  Country: CA (occurrence: CA)
  Receive Date: 20121026
  Receipt Date: 20121026
  Transmission Date: 20130627
  Serious: No
  Sender: FDA-Public Use
  Company Number: CA-TEVA-365518USA

PATIENT
  Age: 17 Year
  Sex: Female

DRUGS (1)
  1. PLAN B [Suspect]
     Indication: CONTRACEPTION
     Dosage: 2 tb (2 x 0.75mg)
     Route: 048
     Dates: start: 20121007, end: 20121007

REACTIONS (1)
  - Menstruation delayed [Not Recovered/Not Resolved]
